FAERS Safety Report 6872748-0 (Version None)
Quarter: 2010Q3

REPORT INFORMATION
  Report Type: 
  Country: None (occurrence: None)
  Receive Date: 20100723
  Receipt Date: 20081022
  Transmission Date: 20110219
  Serious: No
  Sender: FDA-Public Use
  Company Number: US-PFIZER INC-2008089900

PATIENT
  Age: 60 Year
  Sex: Male

DRUGS (7)
  1. CHANTIX [Suspect]
     Indication: SMOKING CESSATION THERAPY
  2. ADVAIR DISKUS 100/50 [Concomitant]
  3. SPIRIVA [Concomitant]
  4. ZETIA [Concomitant]
  5. PAXIL [Concomitant]
  6. LISINOPRIL [Concomitant]
  7. ASPIRINE [Concomitant]

REACTIONS (1)
  - SYNCOPE [None]
